FAERS Safety Report 25086488 (Version 2)
Quarter: 2025Q2

REPORT INFORMATION
  Report Type: Spontaneous
  Country: JP (occurrence: JP)
  Receive Date: 20250317
  Receipt Date: 20250404
  Transmission Date: 20250717
  Serious: No
  Sender: BAUSCH AND LOMB
  Company Number: JP-BAUSCH-BL-2025-003609

PATIENT
  Age: 58 Year
  Sex: Female

DRUGS (4)
  1. BUDESONIDE [Suspect]
     Active Substance: BUDESONIDE
     Indication: Colitis ulcerative
     Route: 048
     Dates: start: 20250221, end: 20250321
  2. RECTABUL (BUDESONIDE) [Concomitant]
     Indication: Colitis ulcerative
  3. CAROGRA (CAROTEGRAST METHYL) [Concomitant]
     Indication: Colitis ulcerative
  4. PENTASA [Concomitant]
     Active Substance: MESALAMINE
     Indication: Colitis ulcerative
     Route: 065

REACTIONS (1)
  - Drug intolerance [Unknown]
